FAERS Safety Report 6815652-6 (Version None)
Quarter: 2010Q3

REPORT INFORMATION
  Report Type: 
  Country: None (occurrence: None)
  Receive Date: 20100702
  Receipt Date: 20100625
  Transmission Date: 20110219
  Serious: Yes (Hospitalization)
  Sender: FDA-Public Use
  Company Number: IT-ABBOTT-10P-083-0653728-00

PATIENT
  Age: 28 Year
  Sex: Female

DRUGS (4)
  1. DEPAKIN CHRONO TABLETS [Suspect]
     Indication: DEPRESSION
     Route: 048
  2. TOPAMAX [Suspect]
     Indication: DEPRESSION
     Route: 048
  3. DULOXETINE HYDROCHLORIDE [Suspect]
     Indication: DEPRESSION
     Route: 048
  4. LEXOTAN [Suspect]
     Indication: DEPRESSION
     Route: 048

REACTIONS (1)
  - SUBSTANCE ABUSE [None]
